FAERS Safety Report 7400748-0 (Version None)
Quarter: 2011Q1

REPORT INFORMATION
  Report Type: 
  Country: None (occurrence: None)
  Receive Date: 20110329
  Receipt Date: 20110325
  Transmission Date: 20110831
  Serious: Yes (Hospitalization)
  Sender: FDA-Public Use
  Company Number: 004219

PATIENT
  Sex: Female
  Weight: 79.2 kg

DRUGS (5)
  1. METHOTREXATE [Concomitant]
  2. FOLIC ACID [Concomitant]
  3. BENALAPRIL [Concomitant]
  4. CERTOLIZUMAB PEGOL [Suspect]
     Indication: RHEUMATOID ARTHRITIS
     Dosage: 200 MG 1X/2 WEEKS, SUBCUTANEOUS
     Route: 058
     Dates: start: 20091111
  5. IBUPROFEN [Concomitant]

REACTIONS (9)
  - HYPOTENSION [None]
  - UPPER RESPIRATORY TRACT INFECTION [None]
  - BRONCHITIS [None]
  - DYSPNOEA [None]
  - DEHYDRATION [None]
  - NAUSEA [None]
  - VOMITING [None]
  - ASTHENIA [None]
  - URINARY TRACT INFECTION [None]
